FAERS Safety Report 10250142 (Version 1)
Quarter: 2014Q2

REPORT INFORMATION
  Report Type: Spontaneous
  Country: US (occurrence: US)
  Receive Date: 20140620
  Receipt Date: 20140620
  Transmission Date: 20141212
  Serious: No
  Sender: FDA-Public Use
  Company Number: US-BRISTOL-MYERS SQUIBB COMPANY-20688487

PATIENT
  Age: 77 Year
  Sex: Male

DRUGS (7)
  1. ELIQUIS [Suspect]
     Dates: start: 201402
  2. LIPITOR [Concomitant]
  3. VITAMIN D [Concomitant]
  4. COLACE [Concomitant]
  5. ALTACE [Concomitant]
  6. COQ10 [Concomitant]
  7. LIBRIUM [Concomitant]

REACTIONS (1)
  - Flushing [Not Recovered/Not Resolved]
